FAERS Safety Report 4692706-4 (Version None)
Quarter: 2005Q2

REPORT INFORMATION
  Report Type: 
  Country: None (occurrence: None)
  Receive Date: 20050617
  Receipt Date: 20030130
  Transmission Date: 20051028
  Serious: Yes (Hospitalization, Disabling, Other)
  Sender: FDA-Public Use
  Company Number: US-MERCK-0302USA00101

PATIENT
  Age: 48 Year
  Sex: Male
  Weight: 166 kg

DRUGS (10)
  1. VIOXX [Suspect]
     Indication: OSTEOARTHRITIS
     Route: 048
     Dates: start: 20010727, end: 20010901
  2. [THERAPY UNSPECIFIED] [Concomitant]
     Indication: BLOOD PRESSURE
     Route: 065
  3. TYLENOL [Concomitant]
     Route: 065
     Dates: start: 20010101
  4. GLUCOPHAGE [Concomitant]
     Route: 065
     Dates: start: 20010201
  5. GLYBURIDE [Concomitant]
     Route: 065
     Dates: start: 20010201, end: 20010901
  6. ZOCOR [Suspect]
     Route: 048
     Dates: start: 20010701
  7. DILTIAZEM MSD [Concomitant]
     Route: 065
     Dates: start: 20010727
  8. HYDROCODONE BITARTRATE [Concomitant]
     Route: 065
     Dates: start: 20010301
  9. ASPIRIN [Concomitant]
     Route: 065
     Dates: start: 20010701
  10. ACCUPRIL [Concomitant]
     Route: 065
     Dates: start: 20010815

REACTIONS (59)
  - ASTHMA [None]
  - ATHEROSCLEROSIS [None]
  - BARRETT'S OESOPHAGUS [None]
  - BENIGN PROSTATIC HYPERPLASIA [None]
  - BLADDER OBSTRUCTION [None]
  - BLOOD PRESSURE SYSTOLIC INCREASED [None]
  - CARDIAC FAILURE CONGESTIVE [None]
  - CARDIOMEGALY [None]
  - CELLULITIS [None]
  - CHRONIC OBSTRUCTIVE PULMONARY DISEASE [None]
  - CONSTIPATION [None]
  - CORONARY ARTERY DISEASE [None]
  - COUGH [None]
  - DEPRESSED LEVEL OF CONSCIOUSNESS [None]
  - DIABETES MELLITUS INADEQUATE CONTROL [None]
  - DUODENAL ULCER [None]
  - EMOTIONAL DISTRESS [None]
  - FLUID OVERLOAD [None]
  - GASTRIC ULCER [None]
  - GASTROOESOPHAGEAL REFLUX DISEASE [None]
  - HAEMODIALYSIS [None]
  - HIATUS HERNIA [None]
  - HILAR LYMPHADENOPATHY [None]
  - HYPERLIPIDAEMIA [None]
  - HYPOCALCAEMIA [None]
  - HYPOXIA [None]
  - INFECTION [None]
  - INJURY [None]
  - INTERSTITIAL LUNG DISEASE [None]
  - LEUKOCYTOSIS [None]
  - LIMB INJURY [None]
  - MENISCUS LESION [None]
  - METABOLIC ACIDOSIS [None]
  - MONARTHRITIS [None]
  - MYOCARDIAL INFARCTION [None]
  - NEPHROPATHY TOXIC [None]
  - OESOPHAGEAL ULCER [None]
  - OSTEOARTHRITIS [None]
  - OSTEOCHONDROSIS [None]
  - PAIN IN EXTREMITY [None]
  - PLEURAL DISORDER [None]
  - PNEUMONIA [None]
  - PULMONARY OEDEMA [None]
  - PULMONARY VASCULAR DISORDER [None]
  - RASH ERYTHEMATOUS [None]
  - RASH GENERALISED [None]
  - RASH MACULO-PAPULAR [None]
  - RENAL FAILURE [None]
  - RENAL FAILURE ACUTE [None]
  - RENAL TUBULAR NECROSIS [None]
  - RHABDOMYOLYSIS [None]
  - RIB FRACTURE [None]
  - ROTATOR CUFF SYNDROME [None]
  - SKIN HYPERPIGMENTATION [None]
  - TACHYCARDIA [None]
  - TRICUSPID VALVE INCOMPETENCE [None]
  - URINARY TRACT OBSTRUCTION [None]
  - VASCULAR CALCIFICATION [None]
  - WEIGHT INCREASED [None]
